FAERS Safety Report 15854039 (Version 1)
Quarter: 2019Q1

REPORT INFORMATION
  Report Type: Spontaneous
  Country: US (occurrence: US)
  Receive Date: 20190121
  Receipt Date: 20190121
  Transmission Date: 20190417
  Serious: Yes (Other)
  Sender: FDA-Public Use
  Company Number: None

PATIENT
  Age: 56 Year
  Sex: Male

DRUGS (20)
  1. TELAVANCIN [Suspect]
     Active Substance: TELAVANCIN
     Indication: STAPHYLOCOCCAL INFECTION
     Route: 041
     Dates: start: 20181228, end: 20190106
  2. INSULIN GLARGINE 28 UNITS [Concomitant]
     Dates: start: 20181229
  3. ENOXAPARIN 40 MG [Concomitant]
     Active Substance: ENOXAPARIN
     Dates: start: 20181229, end: 20181229
  4. LISINOPRIL 10 MG [Concomitant]
     Active Substance: LISINOPRIL
     Dates: start: 20190101
  5. METHOCARBAMOL 750 MG [Concomitant]
     Active Substance: METHOCARBAMOL
     Dates: start: 20181228, end: 20190110
  6. LISINOPRIL 5 MG [Concomitant]
     Active Substance: LISINOPRIL
     Dates: start: 20181229, end: 20181230
  7. TORADOL 15 MG INJECTION [Concomitant]
     Dates: start: 20181227, end: 20190101
  8. PERCOCET 10/325 MG [Concomitant]
     Dates: start: 20181229, end: 20190114
  9. GABAPENTIN 200 MG [Concomitant]
     Dates: start: 20190105, end: 20190105
  10. MIRALAX [Concomitant]
     Active Substance: POLYETHYLENE GLYCOL 3350
     Dates: start: 20190101, end: 20190101
  11. MELATONIN 3 MG [Concomitant]
     Dates: start: 20181231
  12. LORTAB [Concomitant]
     Active Substance: ACETAMINOPHEN\HYDROCODONE BITARTRATE
     Dates: start: 20181227, end: 20181229
  13. ASPIRIN 81 MG [Concomitant]
     Active Substance: ASPIRIN
     Dates: start: 20181227, end: 20190109
  14. GABAPENTIN 300 MG [Concomitant]
     Active Substance: GABAPENTIN
     Dates: start: 20190104, end: 20190104
  15. INSULIN LISPRO 1-6 UNITS [Concomitant]
     Dates: start: 20181227
  16. SYNTHROID [Concomitant]
     Active Substance: LEVOTHYROXINE SODIUM
     Dates: start: 20181228
  17. LISINOPRIL 2.5 MG [Concomitant]
     Dates: start: 20181227, end: 20181227
  18. PROTONIX 40 MG [Concomitant]
     Dates: start: 20181227
  19. TELAVANCIN [Suspect]
     Active Substance: TELAVANCIN
     Indication: OSTEOMYELITIS
     Route: 041
     Dates: start: 20181228, end: 20190106
  20. ZOLOFT [Concomitant]
     Active Substance: SERTRALINE HYDROCHLORIDE
     Dates: start: 20190105

REACTIONS (7)
  - Osteomyelitis [None]
  - Staphylococcal infection [None]
  - Infusion site vesicles [None]
  - Diabetic neuropathy [None]
  - Infusion site pain [None]
  - Blister [None]
  - Burning sensation [None]

NARRATIVE: CASE EVENT DATE: 20190106
